FAERS Safety Report 23526872 (Version 7)
Quarter: 2024Q3

REPORT INFORMATION
  Report Type: Report from Study
  Country: GB (occurrence: GB)
  Receive Date: 20240215
  Receipt Date: 20240930
  Transmission Date: 20241016
  Serious: Yes (Disabling, Other)
  Sender: NOVARTIS
  Company Number: GB-002147023-NVSC2023GB270855

PATIENT
  Sex: Female

DRUGS (2)
  1. COSENTYX [Suspect]
     Active Substance: SECUKINUMAB
     Indication: Psoriatic arthropathy
     Dosage: 300 MG, 28D (EVERY 28 DAYS) (1 PRE-FILLED DISPOSABLE INJECTION)
     Route: 058
  2. COSENTYX [Suspect]
     Active Substance: SECUKINUMAB
     Dosage: 300 MG, 28D
     Route: 058
     Dates: start: 20240501

REACTIONS (14)
  - Cerebral haemorrhage [Unknown]
  - Gait disturbance [Unknown]
  - Hand deformity [Unknown]
  - Brain injury [Unknown]
  - Product storage error [Unknown]
  - Product dose omission issue [Unknown]
  - Injection site bruising [Unknown]
  - Device defective [Unknown]
  - Accidental exposure to product [Unknown]
  - Incorrect dose administered by device [Unknown]
  - Device breakage [Unknown]
  - Confusional state [Unknown]
  - Pain in extremity [Unknown]
  - Wrong technique in product usage process [Unknown]

NARRATIVE: CASE EVENT DATE: 20240601
